FAERS Safety Report 8857521 (Version 1)
Quarter: 2012Q4

REPORT INFORMATION
  Report Type: 
  Country: US (occurrence: US)
  Receive Date: 20121024
  Receipt Date: 20121024
  Transmission Date: 20130627
  Serious: Yes (Hospitalization)
  Sender: FDA-Public Use
  Company Number: US-GLAXOSMITHKLINE-A0996888A

PATIENT
  Age: 50 Year
  Sex: Male

DRUGS (4)
  1. ADVAIR [Suspect]
     Indication: ASTHMA
     Route: 055
  2. ADVAIR DISKUS [Suspect]
     Indication: ASTHMA
     Route: 055
  3. ADVAIR [Suspect]
     Indication: ASTHMA
     Route: 055
  4. ALBUTEROL [Concomitant]

REACTIONS (2)
  - Dyspnoea [Unknown]
  - Asthma [Unknown]
